FAERS Safety Report 13047345 (Version 1)
Quarter: 2016Q4

REPORT INFORMATION
  Report Type: Spontaneous
  Country: JP (occurrence: JP)
  Receive Date: 20161220
  Receipt Date: 20161220
  Transmission Date: 20170207
  Serious: Yes (Death, Other)
  Sender: FDA-Public Use
  Company Number: JP-BAYER-2016-237882

PATIENT
  Age: 73 Year
  Sex: Male

DRUGS (1)
  1. XOFIGO [Suspect]
     Active Substance: RADIUM RA-223 DICHLORIDE
     Indication: HORMONE-REFRACTORY PROSTATE CANCER
     Dosage: UNK
     Route: 042
     Dates: start: 20161116, end: 20161116

REACTIONS (4)
  - Dyspnoea [None]
  - Hormone-refractory prostate cancer [Fatal]
  - Pulmonary embolism [None]
  - Pneumonia aspiration [None]

NARRATIVE: CASE EVENT DATE: 2016
